FAERS Safety Report 6072053-9 (Version None)
Quarter: 2009Q1

REPORT INFORMATION
  Report Type: 
  Country: None (occurrence: None)
  Receive Date: 20090210
  Receipt Date: 20090129
  Transmission Date: 20090719
  Serious: Yes (Other)
  Sender: FDA-Public Use
  Company Number: US-WYE-H07983509

PATIENT
  Sex: Male
  Weight: 69.46 kg

DRUGS (2)
  1. TORISEL [Suspect]
     Indication: RENAL CELL CARCINOMA
     Route: 042
     Dates: start: 20080328, end: 20080701
  2. TORISEL [Suspect]
     Route: 042
     Dates: start: 20080716, end: 20081015

REACTIONS (1)
  - PULMONARY FIBROSIS [None]
